FAERS Safety Report 19770900 (Version 2)
Quarter: 2021Q3

REPORT INFORMATION
  Report Type: Spontaneous
  Country: US (occurrence: US)
  Receive Date: 20210901
  Receipt Date: 20210920
  Transmission Date: 20211014
  Serious: Yes (Other)
  Sender: FDA-Public Use
  Company Number: US-PFIZER INC-202101069154

PATIENT
  Age: 43 Year
  Sex: Female

DRUGS (1)
  1. LINEZOLID. [Suspect]
     Active Substance: LINEZOLID
     Dosage: UNK

REACTIONS (3)
  - Aplasia pure red cell [Unknown]
  - Myelosuppression [Unknown]
  - Pancytopenia [Unknown]
